FAERS Safety Report 25551636 (Version 1)
Quarter: 2025Q3

REPORT INFORMATION
  Report Type: Spontaneous
  Country: US (occurrence: US)
  Receive Date: 20250714
  Receipt Date: 20250714
  Transmission Date: 20251021
  Serious: Yes (Death, Life-Threatening, Hospitalization, Other)
  Sender: ASTELLAS
  Company Number: US-ASTELLAS-2025-AER-038435

PATIENT
  Age: 76 Year
  Sex: Female

DRUGS (4)
  1. TACROLIMUS [Suspect]
     Active Substance: TACROLIMUS
     Indication: Renal transplant
     Route: 065
     Dates: start: 2021
  2. ISAVUCONAZOLE [Suspect]
     Active Substance: ISAVUCONAZOLE
     Indication: Histoplasmosis
     Route: 042
  3. MYCOPHENOLATE MOFETIL [Concomitant]
     Active Substance: MYCOPHENOLATE MOFETIL
     Indication: Renal transplant
     Route: 065
     Dates: start: 2021
  4. PREDNISONE [Concomitant]
     Active Substance: PREDNISONE
     Indication: Renal transplant
     Route: 065
     Dates: start: 2021

REACTIONS (8)
  - Pneumonia pseudomonal [Fatal]
  - Enterococcal bacteraemia [Fatal]
  - Large intestinal haemorrhage [Fatal]
  - Cytomegalovirus colitis [Fatal]
  - Histoplasmosis [Fatal]
  - Histoplasmosis disseminated [Unknown]
  - Septic shock [Unknown]
  - Off label use [Unknown]
